FAERS Safety Report 9995001 (Version 1)
Quarter: 2014Q1

REPORT INFORMATION
  Report Type: Spontaneous
  Country: GB (occurrence: GB)
  Receive Date: 20140311
  Receipt Date: 20140311
  Transmission Date: 20141002
  Serious: Yes (Other)
  Sender: FDA-Public Use
  Company Number: GB-ROXANE LABORATORIES, INC.-2014-BI-09962GD

PATIENT
  Sex: 0

DRUGS (5)
  1. MORPHINSULFAT [Suspect]
     Indication: EXPOSURE DURING PREGNANCY
     Route: 064
  2. CLONIDINE [Suspect]
     Indication: EXPOSURE DURING PREGNANCY
     Route: 064
  3. OXYNORM [Suspect]
     Indication: EXPOSURE DURING PREGNANCY
     Route: 064
  4. MORPHINE [Suspect]
     Indication: EXPOSURE DURING PREGNANCY
     Route: 064
  5. KETAMINE [Suspect]
     Indication: EXPOSURE DURING PREGNANCY
     Route: 064

REACTIONS (6)
  - Drug withdrawal syndrome neonatal [Unknown]
  - Renal cyst [Unknown]
  - Caesarean section [None]
  - Tracheo-oesophageal fistula [None]
  - Maternal drugs affecting foetus [None]
  - Premature baby [None]
